FAERS Safety Report 8463832-9 (Version None)
Quarter: 2012Q2

REPORT INFORMATION
  Report Type: 
  Country: None (occurrence: None)
  Receive Date: 20120625
  Receipt Date: 20120613
  Transmission Date: 20120825
  Serious: No
  Sender: FDA-Public Use
  Company Number: US-ASTRAZENECA-2012SE39853

PATIENT
  Age: 60 Year
  Sex: Male

DRUGS (1)
  1. NEXIUM [Suspect]
     Route: 048

REACTIONS (6)
  - PAIN [None]
  - DISCOMFORT [None]
  - ADVERSE EVENT [None]
  - DRUG DOSE OMISSION [None]
  - APHAGIA [None]
  - INSOMNIA [None]
